FAERS Safety Report 13680348 (Version 1)
Quarter: 2017Q2

REPORT INFORMATION
  Report Type: Spontaneous
  Country: IT (occurrence: IT)
  Receive Date: 20170622
  Receipt Date: 20170622
  Transmission Date: 20170830
  Serious: Yes (Disabling)
  Sender: FDA-Public Use
  Company Number: IT-ROCHE-1952015

PATIENT
  Age: 53 Year
  Sex: Female

DRUGS (18)
  1. PACLITAXEL. [Concomitant]
     Active Substance: PACLITAXEL
     Indication: BREAST CANCER METASTATIC
     Dosage: 8 CYCLES ADMINISTERED ALONG WITH BEVACIZUMAB
     Route: 042
     Dates: start: 20140626, end: 20141129
  2. ERIBULIN MESYLATE [Concomitant]
     Active Substance: ERIBULIN MESYLATE
     Indication: BREAST CANCER METASTATIC
     Route: 042
     Dates: start: 20170308, end: 20170429
  3. FULVESTRANT [Concomitant]
     Active Substance: FULVESTRANT
     Route: 030
     Dates: start: 201609
  4. MYOCET [Concomitant]
     Active Substance: DOXORUBICIN
     Indication: BREAST CANCER METASTATIC
     Dosage: 50 MG BOX WITH 2 SETS OF THREE VIALS, INTRAVENOUS
     Route: 042
     Dates: start: 20151204, end: 20160810
  5. ZOMETA [Suspect]
     Active Substance: ZOLEDRONIC ACID
     Indication: BREAST CANCER METASTATIC
     Dosage: 4 MG 1 VIAL + 1 VIAL OF SOLVENT 5 ML
     Route: 042
     Dates: start: 20140701, end: 201412
  6. TARGIN [Concomitant]
     Active Substance: NALOXONE HYDROCHLORIDE\OXYCODONE HYDROCHLORIDE
     Dosage: 10 MG/5 MG 10 TABLETS
     Route: 048
  7. NOZINAN [Concomitant]
     Active Substance: LEVOMEPROMAZINE
     Dosage: 25 MG FILM-COATED TABLETS (20 TABLETS)
     Route: 048
  8. GEMCITABINE [Concomitant]
     Active Substance: GEMCITABINE\GEMCITABINE HYDROCHLORIDE
     Route: 065
     Dates: start: 20170527
  9. AVASTIN [Suspect]
     Active Substance: BEVACIZUMAB
     Dosage: 1 X 400 MG VIAL OF CONCENTRATE FOR SOLUTION
     Route: 042
     Dates: start: 20150112, end: 20150112
  10. LANSOPRAZOLE. [Concomitant]
     Active Substance: LANSOPRAZOLE
     Route: 048
  11. ZOMETA [Suspect]
     Active Substance: ZOLEDRONIC ACID
     Dosage: 4 MG 1 VIAL + 1 VIAL OF SOLVENT 5 ML
     Route: 042
     Dates: start: 20151116, end: 20160720
  12. PACLITAXEL. [Concomitant]
     Active Substance: PACLITAXEL
     Dosage: MONOTHERAPY
     Route: 042
     Dates: start: 20140606
  13. CARBOPLATIN. [Concomitant]
     Active Substance: CARBOPLATIN
     Route: 065
     Dates: start: 20170527
  14. AVASTIN [Suspect]
     Active Substance: BEVACIZUMAB
     Indication: BREAST CANCER METASTATIC
     Dosage: 8 CYCLES WITH PACLITAXEL
     Route: 065
     Dates: start: 20140626, end: 20141129
  15. AVASTIN [Suspect]
     Active Substance: BEVACIZUMAB
     Dosage: TWO ADMINISTRATIONS (TOTAL 10 ADMINISTRATIONS UPTO 12/JAN/2015)
     Route: 065
     Dates: start: 20141220, end: 20150112
  16. VELLOFENT [Concomitant]
     Dosage: 67 MICROGRAMS 15 TABLETS
     Route: 048
  17. LETROZOLE. [Concomitant]
     Active Substance: LETROZOLE
     Indication: BREAST CANCER METASTATIC
     Dosage: IN COMBINATION WITH BEVACIZUMAB AND SUBSEQUENTLY AS MONOTHERAPY
     Route: 065
     Dates: start: 20150112, end: 20151006
  18. DELTACORTENE [Concomitant]
     Active Substance: PREDNISONE
     Dosage: 5 MG TABLETS^ 10 TABLETS
     Route: 048

REACTIONS (2)
  - Dysaesthesia [Not Recovered/Not Resolved]
  - Osteonecrosis of jaw [Not Recovered/Not Resolved]

NARRATIVE: CASE EVENT DATE: 20170501
